FAERS Safety Report 25754338 (Version 3)
Quarter: 2025Q4

REPORT INFORMATION
  Report Type: Spontaneous
  Country: US (occurrence: US)
  Receive Date: 20250903
  Receipt Date: 20251009
  Transmission Date: 20260118
  Serious: No
  Sender: LUPIN
  Company Number: US-LUPIN PHARMACEUTICALS INC.-2025-07797

PATIENT
  Age: 86 Year
  Weight: 58.957 kg

DRUGS (1)
  1. TIOTROPIUM BROMIDE [Suspect]
     Active Substance: TIOTROPIUM BROMIDE
     Indication: Pneumonia
     Dosage: ONE CAPSULE 2-PUFFS ONCE A DAY

REACTIONS (6)
  - Product use in unapproved indication [Unknown]
  - Drug dose omission by device [Unknown]
  - Wrong technique in device usage process [Unknown]
  - Device delivery system issue [Unknown]
  - Device mechanical issue [Unknown]
  - No adverse event [Unknown]
